FAERS Safety Report 13256787 (Version 1)
Quarter: 2017Q1

REPORT INFORMATION
  Report Type: Spontaneous
  Country: US (occurrence: US)
  Receive Date: 20170221
  Receipt Date: 20170221
  Transmission Date: 20170428
  Serious: No
  Sender: FDA-Public Use
  Company Number: US-DUCHESNAY INC.-1063380

PATIENT
  Sex: Female

DRUGS (2)
  1. DICLEGIS [Suspect]
     Active Substance: DOXYLAMINE SUCCINATE\PYRIDOXINE HYDROCHLORIDE
  2. PHENERGAN [Suspect]
     Active Substance: PROMETHAZINE HYDROCHLORIDE

REACTIONS (4)
  - Somnolence [Unknown]
  - Drug administration error [Recovered/Resolved]
  - Drug dispensing error [Recovered/Resolved]
  - Drug interaction [Recovered/Resolved]
